FAERS Safety Report 8576466-2 (Version None)
Quarter: 2012Q3

REPORT INFORMATION
  Report Type: 
  Country: None (occurrence: None)
  Receive Date: 20120725
  Receipt Date: 20120711
  Transmission Date: 20120928
  Serious: Yes (Other)
  Sender: FDA-Public Use
  Company Number: FK201201954

PATIENT
  Age: 53 Year
  Sex: Male

DRUGS (3)
  1. HYDRALAZINE HCL [Suspect]
     Indication: PORTAL HYPERTENSION
     Dosage: 25 MG, THREE TIMES DAILY,
  2. FUROSEMIDE [Concomitant]
  3. MULTIPLE MEDICATIONS [Concomitant]

REACTIONS (5)
  - ACUTE FEBRILE NEUTROPHILIC DERMATOSIS [None]
  - HAEMATURIA [None]
  - PERICARDIAL EFFUSION [None]
  - SYSTEMIC LUPUS ERYTHEMATOSUS [None]
  - PLEURAL EFFUSION [None]
